FAERS Safety Report 4750521-7 (Version None)
Quarter: 2005Q3

REPORT INFORMATION
  Report Type: 
  Country: None (occurrence: None)
  Receive Date: 20050819
  Receipt Date: 20050805
  Transmission Date: 20060218
  Serious: Yes (Hospitalization)
  Sender: FDA-Public Use
  Company Number: WAES 0502USA02560

PATIENT
  Age: 64 Year
  Sex: Male

DRUGS (1)
  1. FINASTERIDE [Suspect]
     Indication: BENIGN PROSTATIC HYPERPLASIA
     Dosage: 5 MG/DAILY
     Route: 048
     Dates: start: 20040727, end: 20050627

REACTIONS (2)
  - PROSTATIC SPECIFIC ANTIGEN ABNORMAL [None]
  - PROSTATIC SPECIFIC ANTIGEN INCREASED [None]
